FAERS Safety Report 10061598 (Version 1)
Quarter: 2014Q2

REPORT INFORMATION
  Report Type: Spontaneous
  Country: BR (occurrence: BR)
  Receive Date: 20140407
  Receipt Date: 20140407
  Transmission Date: 20141212
  Serious: Yes (Other)
  Sender: FDA-Public Use
  Company Number: BR-ROCHE-1372463

PATIENT
  Age: 42 Year
  Sex: Male

DRUGS (1)
  1. DIAZEPAM [Suspect]
     Indication: PRODUCT USED FOR UNKNOWN INDICATION
     Route: 065
     Dates: start: 20140324, end: 20140324

REACTIONS (5)
  - Overdose [Unknown]
  - Aggression [Unknown]
  - Suicide attempt [Unknown]
  - Road traffic accident [Unknown]
  - Somnolence [Unknown]
